FAERS Safety Report 12176051 (Version 3)
Quarter: 2016Q2

REPORT INFORMATION
  Report Type: Report from Study
  Country: FR (occurrence: FR)
  Receive Date: 20160314
  Receipt Date: 20160518
  Transmission Date: 20160815
  Serious: Yes (Other)
  Sender: FDA-Public Use
  Company Number: FR-AMGEN-FRANI2016002562

PATIENT
  Age: 65 Year
  Sex: Female

DRUGS (4)
  1. BLINATUMOMAB [Suspect]
     Active Substance: BLINATUMOMAB
     Indication: PRODUCT USED FOR UNKNOWN INDICATION
     Dosage: 28 MUG, QD
     Route: 042
     Dates: start: 20151201, end: 20151224
  2. ROVALCYTE [Concomitant]
     Active Substance: VALGANCICLOVIR HYDROCHLORIDE
     Dosage: 450 MG, BID
     Dates: start: 201509
  3. CEFRADINE [Concomitant]
     Active Substance: CEPHRADINE
     Dosage: 1P/M2/12 H
     Dates: start: 201510
  4. NILOTINIB [Concomitant]
     Active Substance: NILOTINIB
     Dosage: UNK
     Dates: end: 20151119

REACTIONS (3)
  - Neutropenia [Recovered/Resolved]
  - Device related thrombosis [Not Recovered/Not Resolved]
  - Thrombocytopenia [Recovered/Resolved]

NARRATIVE: CASE EVENT DATE: 20151208
